FAERS Safety Report 7288695-9 (Version None)
Quarter: 2011Q1

REPORT INFORMATION
  Report Type: 
  Country: None (occurrence: None)
  Receive Date: 20110201
  Receipt Date: 20110118
  Transmission Date: 20110831
  Serious: Yes (Other)
  Sender: FDA-Public Use
  Company Number: DSM-2011-00045

PATIENT
  Age: 56 Year
  Sex: Male

DRUGS (2)
  1. SIMVASTATIN (SIMVASTATIN) (TABLET) (SIMVASTATIN) [Concomitant]
  2. OLMETEC (OLMESARTAN MEDOXOMIL) (TABLET) (OLMESARTAN MEDOXOMIL) [Suspect]
     Indication: HYPERTENSION
     Dosage: 20 MG (20 MG,1 IN 1 D),ORAL
     Route: 048
     Dates: start: 20081021, end: 20100101

REACTIONS (5)
  - ANORECTAL DISCOMFORT [None]
  - DRY SKIN [None]
  - SKIN IRRITATION [None]
  - ANAL INFECTION [None]
  - HAEMATOCHEZIA [None]
